FAERS Safety Report 6715269-8 (Version None)
Quarter: 2010Q2

REPORT INFORMATION
  Report Type: 
  Country: None (occurrence: None)
  Receive Date: 20100507
  Receipt Date: 20100430
  Transmission Date: 20101027
  Serious: Yes (Other)
  Sender: FDA-Public Use
  Company Number: US-JNJFOC-20100500467

PATIENT
  Sex: Female
  Weight: 73.48 kg

DRUGS (5)
  1. TOPAMAX [Suspect]
     Indication: MIGRAINE PROPHYLAXIS
     Dosage: 50 MG TWICE A DAY
     Route: 048
  2. XANAX [Concomitant]
     Indication: PANIC ATTACK
     Route: 048
  3. CYCLOBENZAPRINE [Concomitant]
     Indication: MYALGIA
     Route: 048
  4. TRAMADOL [Concomitant]
     Indication: PAIN
     Dosage: 1-2 EVERY 4-6 HOURS AS NEEDED
     Route: 048
  5. CYMBALTA [Concomitant]
     Indication: FIBROMYALGIA
     Route: 048

REACTIONS (3)
  - BLOOD CHOLESTEROL INCREASED [None]
  - DEPRESSION [None]
  - MACULAR DEGENERATION [None]
